FAERS Safety Report 26071443 (Version 1)
Quarter: 2025Q4

REPORT INFORMATION
  Report Type: Spontaneous
  Country: US (occurrence: US)
  Receive Date: 20251120
  Receipt Date: 20251120
  Transmission Date: 20260118
  Serious: No
  Sender: SEPTODONT
  Company Number: US-SEPTODONT-2025019508

PATIENT
  Age: 47 Year
  Sex: Male

DRUGS (1)
  1. EPINEPHRINE BITARTRATE\LIDOCAINE HYDROCHLORIDE [Suspect]
     Active Substance: EPINEPHRINE BITARTRATE\LIDOCAINE HYDROCHLORIDE
     Indication: Dental local anaesthesia
     Dosage: 3 CARTRIDGES OF THE LIDOCAINE?THE INJECTION SITES WERE REPORTED TO BE HEALTHY
     Route: 004

REACTIONS (2)
  - Drug ineffective [Unknown]
  - No adverse event [Unknown]
